FAERS Safety Report 16288451 (Version 2)
Quarter: 2019Q2

REPORT INFORMATION
  Report Type: Spontaneous
  Country: AR (occurrence: AR)
  Receive Date: 20190509
  Receipt Date: 20190621
  Transmission Date: 20190711
  Serious: Yes (Other)
  Sender: FDA-Public Use
  Company Number: AR-AMGEN-ARGSP2017149275

PATIENT
  Age: 75 Year
  Sex: Female

DRUGS (2)
  1. ENBREL [Suspect]
     Active Substance: ETANERCEPT
     Dosage: 50 MILLIGRAM, QWK
     Route: 065
  2. ENBREL [Suspect]
     Active Substance: ETANERCEPT
     Indication: RHEUMATOID ARTHRITIS
     Dosage: 50 MILLIGRAM, QWK
     Route: 065
     Dates: start: 20170901

REACTIONS (9)
  - Insomnia [Recovering/Resolving]
  - Arthralgia [Recovering/Resolving]
  - Joint swelling [Recovering/Resolving]
  - Ovarian neoplasm [Recovered/Resolved]
  - Umbilical hernia [Recovered/Resolved]
  - Pain [Recovering/Resolving]
  - Peripheral swelling [Recovering/Resolving]
  - Foot deformity [Recovering/Resolving]
  - Finger deformity [Recovering/Resolving]

NARRATIVE: CASE EVENT DATE: 20170914
